FAERS Safety Report 7918271-3 (Version None)
Quarter: 2011Q4

REPORT INFORMATION
  Report Type: 
  Country: None (occurrence: None)
  Receive Date: 20111116
  Receipt Date: 20111027
  Transmission Date: 20120403
  Serious: Yes (Other)
  Sender: FDA-Public Use
  Company Number: FR-GLAXOSMITHKLINE-B0759309A

PATIENT
  Sex: Female

DRUGS (2)
  1. RADIOTHERAPY [Concomitant]
     Indication: LUNG NEOPLASM MALIGNANT
  2. FLUTICASONE PROPIONATE/SALMETEROL [Suspect]
     Indication: ATELECTASIS
     Route: 055
     Dates: start: 20111001

REACTIONS (4)
  - COUGH [None]
  - PRODUCTIVE COUGH [None]
  - BRONCHOPULMONARY ASPERGILLOSIS [None]
  - CHEST X-RAY ABNORMAL [None]
